FAERS Safety Report 21049164 (Version 1)
Quarter: 2022Q3

REPORT INFORMATION
  Report Type: Spontaneous
  Country: CZ (occurrence: CZ)
  Receive Date: 20220706
  Receipt Date: 20220706
  Transmission Date: 20221027
  Serious: Yes (Hospitalization)
  Sender: FDA-Public Use
  Company Number: CZ-CELGENE-CZE-20220207629

PATIENT
  Age: 70 Year
  Sex: Male
  Weight: 70 kg

DRUGS (8)
  1. AZACITIDINE [Suspect]
     Active Substance: AZACITIDINE
     Indication: Myelodysplastic syndrome
     Dosage: 75 MILLIGRAM/SQ. METER, QD
     Route: 058
     Dates: start: 20210503
  2. VENETOCLAX [Suspect]
     Active Substance: VENETOCLAX
     Indication: Myelodysplastic syndrome
     Dosage: UNK
     Route: 048
     Dates: start: 20210503
  3. AMOXICILLIN\CLAVULANATE POTASSIUM [Concomitant]
     Active Substance: AMOXICILLIN\CLAVULANATE POTASSIUM
     Indication: Upper respiratory tract infection
     Dosage: UNK (2 GRAIN)
     Route: 048
     Dates: start: 20211102
  4. GRANISETRON HYDROCHLORIDE [Concomitant]
     Active Substance: GRANISETRON HYDROCHLORIDE
     Indication: Prophylaxis of nausea and vomiting
     Dosage: 2 MILLIGRAM, QD
     Route: 048
     Dates: start: 20210503
  5. CLINDAMYCIN [Concomitant]
     Active Substance: CLINDAMYCIN
     Indication: Cellulitis
     Dosage: 300 MILLIGRAM (1200 MILLIGRAM)
     Route: 048
     Dates: start: 20210713
  6. BRAUNOVIDON [Concomitant]
     Indication: Cellulitis
     Dosage: 100 MILLIGRAM (FREQUENCY TEXT: AS REQUIRED)
     Route: 061
     Dates: start: 20210701
  7. COVID-19 vaccine [Concomitant]
     Indication: Immunisation
     Dosage: UNK, FREQUENCY TEXT: NOT PROVIDED
     Route: 065
     Dates: start: 20210522, end: 20210522
  8. COVID-19 vaccine [Concomitant]
     Dosage: UNK, FREQUENCY TEXT: NOT PROVIDED
     Route: 065
     Dates: start: 20210703, end: 20210703

REACTIONS (1)
  - Lymphadenopathy [Not Recovered/Not Resolved]

NARRATIVE: CASE EVENT DATE: 20211114
